APPROVED DRUG PRODUCT: DOXYCYCLINE
Active Ingredient: DOXYCYCLINE
Strength: EQ 100MG BASE
Dosage Form/Route: TABLET;ORAL
Application: A065377 | Product #003
Applicant: CHARTWELL RX SCIENCES LLC
Approved: Nov 7, 2006 | RLD: No | RS: No | Type: DISCN